FAERS Safety Report 6457719-0 (Version None)
Quarter: 2009Q4

REPORT INFORMATION
  Report Type: 
  Country: None (occurrence: None)
  Receive Date: 20091125
  Receipt Date: 20091117
  Transmission Date: 20100525
  Serious: Yes (Disabling)
  Sender: FDA-Public Use
  Company Number: AU-PFIZER INC-2009275834

PATIENT
  Age: 32 Year
  Sex: Female
  Weight: 85 kg

DRUGS (3)
  1. CHAMPIX [Suspect]
     Indication: SMOKING CESSATION THERAPY
     Dosage: 1 MG, 2X/DAY
     Route: 048
     Dates: start: 20090731, end: 20090919
  2. CHAMPIX [Suspect]
     Dosage: 0.5 MG, UNK
     Route: 048
  3. VITAMIN B COMPLEX CAP [Concomitant]
     Dosage: UNK

REACTIONS (9)
  - ABNORMAL DREAMS [None]
  - AGEUSIA [None]
  - BLOOD ZINC DECREASED [None]
  - DECREASED APPETITE [None]
  - DEPRESSION [None]
  - DYSGEUSIA [None]
  - NAUSEA [None]
  - SINUSITIS [None]
  - WEIGHT DECREASED [None]
